FAERS Safety Report 6410128-2 (Version None)
Quarter: 2009Q4

REPORT INFORMATION
  Report Type: 
  Country: None (occurrence: None)
  Receive Date: 20091022
  Receipt Date: 20091012
  Transmission Date: 20100525
  Serious: Yes (Death)
  Sender: FDA-Public Use
  Company Number: AR-ROCHE-646714

PATIENT
  Sex: Female

DRUGS (3)
  1. MYCOPHENOLATE MOFETIL [Suspect]
     Route: 065
     Dates: start: 20061118
  2. BELATACEPT [Suspect]
     Route: 042
     Dates: start: 20061118
  3. BACTRIM [Concomitant]
     Dates: start: 20061118

REACTIONS (1)
  - CEREBRAL FUNGAL INFECTION [None]
